FAERS Safety Report 15307687 (Version 1)
Quarter: 2018Q3

REPORT INFORMATION
  Report Type: Spontaneous
  Country: US (occurrence: US)
  Receive Date: 20180810
  Receipt Date: 20180810
  Transmission Date: 20181010
  Serious: Yes (Other)
  Sender: FDA-Public Use
  Company Number: None

PATIENT
  Age: 43 Year
  Sex: Female
  Weight: 56.25 kg

DRUGS (1)
  1. ENBREL [Suspect]
     Active Substance: ETANERCEPT
     Indication: RHEUMATOID ARTHRITIS
     Dosage: ?          OTHER ROUTE:INJECTED INTO THIGH?
     Dates: start: 20160801, end: 20180801

REACTIONS (2)
  - Thermal burn [None]
  - Skin reaction [None]

NARRATIVE: CASE EVENT DATE: 20180801
